FAERS Safety Report 10017533 (Version 1)
Quarter: 2014Q1

REPORT INFORMATION
  Report Type: Spontaneous
  Country: US (occurrence: US)
  Receive Date: 20140318
  Receipt Date: 20140318
  Transmission Date: 20141002
  Serious: Yes (Other)
  Sender: FDA-Public Use
  Company Number: US-JNJFOC-20140306978

PATIENT
  Sex: Male

DRUGS (2)
  1. ZYRTEC UNSPECIFIED [Suspect]
     Route: 065
  2. ZYRTEC UNSPECIFIED [Suspect]
     Indication: PRODUCT USED FOR UNKNOWN INDICATION
     Dosage: STARTED TWO WEEKS AGO
     Route: 065

REACTIONS (3)
  - Tic [Unknown]
  - Abnormal behaviour [Unknown]
  - Gastric disorder [Unknown]
